FAERS Safety Report 6815280-2 (Version None)
Quarter: 2010Q3

REPORT INFORMATION
  Report Type: 
  Country: None (occurrence: None)
  Receive Date: 20100702
  Receipt Date: 20100621
  Transmission Date: 20110219
  Serious: Yes (Hospitalization)
  Sender: FDA-Public Use
  Company Number: PHHY2010CN41529

PATIENT
  Age: 66 Year
  Sex: Male

DRUGS (1)
  1. TEGRETOL [Suspect]
     Indication: EPILEPSY
     Dosage: 200 MG, QD
     Route: 048

REACTIONS (23)
  - ASTHENIA [None]
  - BLOOD PRESSURE SYSTOLIC INCREASED [None]
  - CHAPPED LIPS [None]
  - CONJUNCTIVAL OEDEMA [None]
  - CYANOSIS [None]
  - DEPRESSED MOOD [None]
  - DRUG ERUPTION [None]
  - DYSPHAGIA [None]
  - EPIDERMOLYSIS BULLOSA [None]
  - ERYTHEMA [None]
  - ERYTHEMA MULTIFORME [None]
  - EYELID OEDEMA [None]
  - FACE OEDEMA [None]
  - GLIOMA [None]
  - HEART RATE INCREASED [None]
  - MOUTH ULCERATION [None]
  - OROPHARYNGEAL PAIN [None]
  - PYREXIA [None]
  - RASH [None]
  - RASH GENERALISED [None]
  - RASH PRURITIC [None]
  - STEVENS-JOHNSON SYNDROME [None]
  - THROAT TIGHTNESS [None]
